FAERS Safety Report 23925659 (Version 1)
Quarter: 2024Q2

REPORT INFORMATION
  Report Type: Spontaneous
  Country: US (occurrence: US)
  Receive Date: 20240531
  Receipt Date: 20240531
  Transmission Date: 20240716
  Serious: No
  Sender: FDA-Public Use
  Company Number: US-RADIUS HEALTH INC.-2023US002174

PATIENT
  Sex: Female
  Weight: 44.444 kg

DRUGS (2)
  1. TYMLOS [Suspect]
     Active Substance: ABALOPARATIDE
     Indication: Illness
     Dosage: 80 MICROGRAM, QD
     Route: 058
  2. PROLIA [Concomitant]
     Active Substance: DENOSUMAB
     Indication: Product used for unknown indication

REACTIONS (6)
  - Tendonitis [Unknown]
  - Carpal tunnel syndrome [Unknown]
  - Headache [Unknown]
  - Dizziness [Unknown]
  - Palpitations [Unknown]
  - Tachycardia [Unknown]
